FAERS Safety Report 10205389 (Version 1)
Quarter: 2014Q2

REPORT INFORMATION
  Report Type: Spontaneous
  Country: US (occurrence: US)
  Receive Date: 20140529
  Receipt Date: 20140529
  Transmission Date: 20141212
  Serious: No
  Sender: FDA-Public Use
  Company Number: US-SA-2014SA048160

PATIENT
  Age: 75 Year
  Sex: Male

DRUGS (1)
  1. LANTUS [Suspect]
     Indication: DIABETES MELLITUS
     Dosage: DOSAGE-6AM/9PM
     Route: 058
     Dates: start: 2008

REACTIONS (2)
  - Blood glucose abnormal [Unknown]
  - Drug administration error [Unknown]
